FAERS Safety Report 8591176 (Version 2)
Quarter: 2013Q1

REPORT INFORMATION
  Report Type: Spontaneous
  Country: AU (occurrence: AU)
  Receive Date: 20120601
  Receipt Date: 20130117
  Transmission Date: 20140127
  Serious: Yes (Death, Other)
  Sender: FDA-Public Use
  Company Number: AU-ROCHE-1072182

PATIENT
  Sex: Male

DRUGS (2)
  1. ZELBORAF [Suspect]
     Indication: PRODUCT USED FOR UNKNOWN INDICATION
     Route: 065
  2. ZELBORAF [Suspect]
     Route: 065

REACTIONS (6)
  - Death [Fatal]
  - Nervous system disorder [Unknown]
  - Cholestasis [Recovering/Resolving]
  - Cholangitis [Unknown]
  - Keratoacanthoma [Unknown]
  - Rash [Unknown]
